FAERS Safety Report 9467143 (Version 3)
Quarter: 2013Q4

REPORT INFORMATION
  Report Type: Report from Study
  Country: AR (occurrence: AR)
  Receive Date: 20130820
  Receipt Date: 20131114
  Transmission Date: 20140711
  Serious: Yes (Other)
  Sender: FDA-Public Use
  Company Number: AR-ROCHE-1262901

PATIENT
  Age: 73 Year
  Sex: Male

DRUGS (1)
  1. RANIBIZUMAB [Suspect]
     Indication: VISUAL ACUITY REDUCED
     Route: 050
     Dates: start: 2012

REACTIONS (4)
  - Intraocular pressure test abnormal [Not Recovered/Not Resolved]
  - Influenza like illness [Recovering/Resolving]
  - Drug ineffective [Unknown]
  - Vision blurred [Not Recovered/Not Resolved]
